FAERS Safety Report 25080927 (Version 5)
Quarter: 2025Q3

REPORT INFORMATION
  Report Type: Spontaneous
  Country: EU (occurrence: EU)
  Receive Date: 20250315
  Receipt Date: 20250906
  Transmission Date: 20251021
  Serious: Yes (Hospitalization, Other)
  Sender: AUROBINDO
  Company Number: EU-SA-2025SA058020

PATIENT
  Age: 56 Year
  Sex: Female
  Weight: 48 kg

DRUGS (11)
  1. DOCETAXEL [Suspect]
     Active Substance: DOCETAXEL
     Indication: Non-small cell lung cancer
     Route: 042
     Dates: start: 20250114, end: 20250114
  2. DOCETAXEL [Suspect]
     Active Substance: DOCETAXEL
     Route: 042
     Dates: start: 20250114, end: 20250114
  3. DOCETAXEL [Suspect]
     Active Substance: DOCETAXEL
     Route: 042
     Dates: start: 20250204, end: 20250204
  4. DOCETAXEL [Suspect]
     Active Substance: DOCETAXEL
     Route: 042
     Dates: start: 20250204
  5. TELISOTUZUMAB VEDOTIN [Suspect]
     Active Substance: TELISOTUZUMAB VEDOTIN
     Indication: Non-small cell lung cancer
     Route: 065
  6. MEDROL [Concomitant]
     Active Substance: METHYLPREDNISOLONE
     Indication: Metastases to central nervous system
     Dosage: 8 MILLIGRAM, ONCE A DAY
     Route: 065
     Dates: start: 20241203
  7. NYSTATIN [Concomitant]
     Active Substance: NYSTATIN
     Indication: Mucosal inflammation
     Dosage: UNK UNK, 3 TIMES A DAY
     Route: 065
     Dates: start: 20250121
  8. DIFLUCAN [Concomitant]
     Active Substance: FLUCONAZOLE
     Indication: Mucosal inflammation
     Dosage: 250 MILLIGRAM, ONCE A DAY
     Route: 065
     Dates: start: 20250121
  9. Bleu methylene [Concomitant]
     Indication: Stomatitis
     Dosage: UNK UNK, 3 TIMES A DAY
     Route: 065
     Dates: start: 20250121
  10. BILASTINE [Concomitant]
     Active Substance: BILASTINE
     Indication: Prophylaxis
     Dosage: 20 MILLIGRAM, ONCE A DAY
     Route: 065
     Dates: start: 20240709
  11. TRELEGY ELLIPTA [Concomitant]
     Active Substance: FLUTICASONE FUROATE\UMECLIDINIUM BROMIDE\VILANTEROL TRIFENATATE
     Indication: Dyspnoea
     Dosage: UNK,ONCE A DAY(QD (92/55/22 UG, EVERY 1 DAYS)
     Route: 065
     Dates: start: 20230117

REACTIONS (2)
  - Septic shock [Recovered/Resolved]
  - Pneumonia [Recovered/Resolved]

NARRATIVE: CASE EVENT DATE: 20250214
